FAERS Safety Report 6850817-9 (Version None)
Quarter: 2010Q3

REPORT INFORMATION
  Report Type: 
  Country: None (occurrence: None)
  Receive Date: 20100716
  Receipt Date: 20080102
  Transmission Date: 20110219
  Serious: No
  Sender: FDA-Public Use
  Company Number: US-PFIZER INC-2007089860

PATIENT
  Sex: Female
  Weight: 106.81 kg

DRUGS (9)
  1. CHANTIX [Suspect]
     Indication: SMOKING CESSATION THERAPY
     Dates: start: 20070901
  2. NIFEDIPINE [Concomitant]
  3. DITROPAN [Concomitant]
  4. LOTREL [Concomitant]
  5. CALCIUM [Concomitant]
  6. COMBIVENT [Concomitant]
  7. SEREVENT [Concomitant]
  8. FLOVENT [Concomitant]
  9. DUONEB [Concomitant]

REACTIONS (2)
  - PAIN IN JAW [None]
  - SALIVARY GLAND ENLARGEMENT [None]
